FAERS Safety Report 8006631-4 (Version None)
Quarter: 2011Q4

REPORT INFORMATION
  Report Type: 
  Country: None (occurrence: None)
  Receive Date: 20111227
  Receipt Date: 20111026
  Transmission Date: 20120403
  Serious: No
  Sender: FDA-Public Use
  Company Number: US-BAYER-2011-110925

PATIENT
  Sex: Male

DRUGS (1)
  1. CIPROFLOXACIN [Suspect]
     Indication: INFECTION

REACTIONS (4)
  - TREMOR [None]
  - PAIN IN EXTREMITY [None]
  - TENDON PAIN [None]
  - MUSCLE SPASMS [None]
